FAERS Safety Report 16384650 (Version 3)
Quarter: 2019Q3

REPORT INFORMATION
  Report Type: Spontaneous
  Country: TR (occurrence: TR)
  Receive Date: 20190603
  Receipt Date: 20190924
  Transmission Date: 20191004
  Serious: Yes (Other)
  Sender: FDA-Public Use
  Company Number: TR-CHIESI USA, INC.-TR-2019CHI000211

PATIENT

DRUGS (1)
  1. CUROSURF [Suspect]
     Active Substance: PORACTANT ALFA
     Indication: NEONATAL RESPIRATORY DISTRESS SYNDROME
     Dosage: 200 MG/KG, SINGLE
     Route: 007

REACTIONS (5)
  - Neonatal hypoxia [Recovered/Resolved]
  - Pulmonary haemorrhage neonatal [Recovered/Resolved]
  - Off label use [Unknown]
  - Anaphylactic reaction [Recovered/Resolved]
  - Angiopathy [Recovered/Resolved]
